FAERS Safety Report 5826869-1 (Version None)
Quarter: 2008Q3

REPORT INFORMATION
  Report Type: 
  Country: None (occurrence: None)
  Receive Date: 20080725
  Receipt Date: 20080711
  Transmission Date: 20090109
  Serious: Yes (Death, Hospitalization)
  Sender: FDA-Public Use
  Company Number: 2008BI014525

PATIENT
  Age: 58 Year
  Sex: Male
  Weight: 66 kg

DRUGS (6)
  1. ZEVALIN [Suspect]
     Indication: DIFFUSE LARGE B-CELL LYMPHOMA
     Dosage: 32 MCI;1X;IV
     Route: 042
     Dates: start: 20060830, end: 20060906
  2. RITUXAN [Concomitant]
  3. NEXIUM [Concomitant]
  4. VANCOMYCIN HCL [Concomitant]
  5. MEROPENEM [Concomitant]
  6. FLAGYL [Concomitant]

REACTIONS (40)
  - ABDOMINAL PAIN [None]
  - ABSCESS [None]
  - ACUTE RESPIRATORY DISTRESS SYNDROME [None]
  - ANAEMIA [None]
  - ANXIETY [None]
  - ASCITES [None]
  - ASPARTATE AMINOTRANSFERASE INCREASED [None]
  - ATRIAL FIBRILLATION [None]
  - BLOOD ALKALINE PHOSPHATASE INCREASED [None]
  - BLOOD CREATININE INCREASED [None]
  - BLOOD LACTATE DEHYDROGENASE INCREASED [None]
  - BLOOD URIC ACID INCREASED [None]
  - CARDIAC ARREST [None]
  - DIFFUSE LARGE B-CELL LYMPHOMA [None]
  - FALL [None]
  - GALLBLADDER DISORDER [None]
  - HYPOCALCAEMIA [None]
  - HYPONATRAEMIA [None]
  - HYPOTENSION [None]
  - HYPOVOLAEMIA [None]
  - HYPOXIA [None]
  - INFLAMMATION [None]
  - INTESTINAL OBSTRUCTION [None]
  - INTESTINAL PERFORATION [None]
  - LEUKOCYTOSIS [None]
  - MENINGEAL DISORDER [None]
  - METASTASES TO PERITONEUM [None]
  - NEOPLASM RECURRENCE [None]
  - NEUTROPENIA [None]
  - PERIHEPATIC ABSCESS [None]
  - PLEURAL EFFUSION [None]
  - PNEUMONIA ADENOVIRAL [None]
  - PNEUMOPERITONEUM [None]
  - POST PROCEDURAL DISCHARGE [None]
  - PYREXIA [None]
  - RESPIRATORY FAILURE [None]
  - SEPSIS [None]
  - SPINAL OSTEOARTHRITIS [None]
  - THROMBOCYTOPENIA [None]
  - WHITE BLOOD CELL COUNT DECREASED [None]
